FAERS Safety Report 10256311 (Version 1)
Quarter: 2014Q2

REPORT INFORMATION
  Report Type: Spontaneous
  Country: US (occurrence: US)
  Receive Date: 20140624
  Receipt Date: 20140624
  Transmission Date: 20141212
  Serious: No
  Sender: FDA-Public Use
  Company Number: US-TEVA-489985USA

PATIENT
  Sex: Male

DRUGS (1)
  1. NUVIGIL [Suspect]
     Dates: start: 2008

REACTIONS (4)
  - Hot flush [Unknown]
  - Dizziness [Unknown]
  - Headache [Unknown]
  - Tremor [Unknown]
